FAERS Safety Report 7433932-0 (Version None)
Quarter: 2011Q2

REPORT INFORMATION
  Report Type: 
  Country: None (occurrence: None)
  Receive Date: 20110418
  Receipt Date: 20110404
  Transmission Date: 20111010
  Serious: Yes (Other)
  Sender: FDA-Public Use
  Company Number: 1000019992

PATIENT
  Age: 64 Year
  Sex: Male

DRUGS (19)
  1. ASPIRIN [Concomitant]
  2. METOCLOPRAMIDE (METOCLOPRAMIDE) (10 MILLIGRAM) (METOCLORPAMIDE) [Concomitant]
  3. NITROLINGUAL (GLYCERYL TRINITRATE) (GLYCERYL TRINITRATE) [Concomitant]
  4. TEMAZEPAM [Concomitant]
  5. OMEPRAZOLE [Concomitant]
  6. PREDNISOLONE [Concomitant]
  7. RAMIPRIL [Concomitant]
  8. TAMSULOSIN HYDROCHLORIDE) (TAMSULOSIN HYDROCHLORIDE) (TAMSULOSIN HYDRO [Concomitant]
  9. ESCITALOPRAM [Suspect]
     Indication: DEPRESSION
     Dosage: (5 MG, ONCE), ORAL
     Route: 048
     Dates: start: 20110121, end: 20110121
  10. ALENDRONIC ACID (ALENDRONIC ACID) (ALENDRONIC ACID) [Concomitant]
  11. DIAZEPAM [Concomitant]
  12. TEARS NATURALE (DEXTRAN 70, HYPROMELLOSE) (DEXTRAN 70, HYPROMELLOSE) [Concomitant]
  13. BISOPROLOL FUMARATE [Concomitant]
  14. CIPROFIBRATE (CIPROFIBRATE) (CIPROFIBRATE) [Concomitant]
  15. BUTRAN (BUPRENORPHINE) (BUPRENORPHINE) [Concomitant]
  16. PARACETAMOL (PARACETAMOL) (500 MILLIGRAM) (PARACETAMOL) [Concomitant]
  17. AZATHIOPRINE (AZATHIOPRINE) (AZATHIOPRINE) [Concomitant]
  18. LEKOVIT CA (COLECALCIFEROL, CALCIUM CARBONATE) (COLECALCIFEROL, CALCIU [Concomitant]
  19. LACRI-LUBE (PARAFFIN LIQUID, PARAFFIN SOFT WHITE) (PARAFFIN LIQUID, PA [Concomitant]

REACTIONS (12)
  - PARAESTHESIA [None]
  - HYPOAESTHESIA [None]
  - INSOMNIA [None]
  - FEELING COLD [None]
  - DIARRHOEA [None]
  - ASTHENIA [None]
  - MALAISE [None]
  - NAUSEA [None]
  - ANXIETY [None]
  - HYPERTENSION [None]
  - HEART RATE IRREGULAR [None]
  - AGITATION [None]
